FAERS Safety Report 18299736 (Version 1)
Quarter: 2020Q3

REPORT INFORMATION
  Report Type: Spontaneous
  Country: US (occurrence: US)
  Receive Date: 20200922
  Receipt Date: 20200922
  Transmission Date: 20201103
  Serious: No
  Sender: FDA-Public Use
  Company Number: None

PATIENT
  Age: 48 Year
  Sex: Female

DRUGS (2)
  1. MYCOPHENOLIC DR TAB 180MG [Suspect]
     Active Substance: MYCOPHENOLIC ACID
     Indication: RENAL TRANSPLANT
     Route: 048
     Dates: start: 202005, end: 202009
  2. RETACRIT [Concomitant]
     Active Substance: EPOETIN ALFA-EPBX

REACTIONS (1)
  - Atrial flutter [None]

NARRATIVE: CASE EVENT DATE: 20200908
